FAERS Safety Report 17132670 (Version 1)
Quarter: 2019Q4

REPORT INFORMATION
  Report Type: Other
  Country: NL (occurrence: NL)
  Receive Date: 20191210
  Receipt Date: 20191210
  Transmission Date: 20200122
  Serious: Yes (Other)
  Sender: FDA-Public Use
  Company Number: NL-APOTEX-2019AP011989

PATIENT

DRUGS (6)
  1. PREGABALINA CAPSULES [Suspect]
     Active Substance: PREGABALIN
     Indication: BACK PAIN
     Dosage: 300 MG, 2X/DAY
     Route: 048
     Dates: start: 20051013
  2. PREGABALINA CAPSULES [Suspect]
     Active Substance: PREGABALIN
     Indication: ARTHRALGIA
  3. FENTANYL. [Suspect]
     Active Substance: FENTANYL
     Indication: BACK PAIN
     Dosage: 100 MCG/HOUR
     Route: 061
     Dates: start: 20060309
  4. OXYNORM [Suspect]
     Active Substance: OXYCODONE HYDROCHLORIDE
     Indication: ARTHRALGIA
  5. FENTANYL. [Suspect]
     Active Substance: FENTANYL
     Indication: ARTHRALGIA
  6. OXYNORM [Suspect]
     Active Substance: OXYCODONE HYDROCHLORIDE
     Indication: BACK PAIN
     Dosage: 5 MG, 2X/DAY
     Route: 048
     Dates: start: 20060309

REACTIONS (1)
  - Retinitis [Not Recovered/Not Resolved]

NARRATIVE: CASE EVENT DATE: 2006
